FAERS Safety Report 12721552 (Version 1)
Quarter: 2016Q3

REPORT INFORMATION
  Report Type: Spontaneous
  Country: US (occurrence: US)
  Receive Date: 20160906
  Receipt Date: 20160906
  Transmission Date: 20161109
  Serious: No
  Sender: FDA-Public Use
  Company Number: None

PATIENT
  Age: 51 Year
  Sex: Female
  Weight: 80.74 kg

DRUGS (5)
  1. DIGOXIN. [Concomitant]
     Active Substance: DIGOXIN
  2. CRANBERRY. [Concomitant]
     Active Substance: CRANBERRY
  3. VITAMIN C [Concomitant]
     Active Substance: ASCORBIC ACID
  4. WARFARIN (GENERIC FOR COUMADIN) TEVA PHARM [Suspect]
     Active Substance: WARFARIN
     Indication: DEEP VEIN THROMBOSIS
     Dosage: 2 PILLS DAILY MOUTH
     Route: 048
     Dates: start: 20150730, end: 201509
  5. TRIAMT HCTZ (DYAZIDE) [Concomitant]

REACTIONS (7)
  - Muscle spasms [None]
  - Muscular weakness [None]
  - Dizziness [None]
  - Gingival bleeding [None]
  - Abdominal pain [None]
  - Epistaxis [None]
  - Headache [None]

NARRATIVE: CASE EVENT DATE: 20150730
